FAERS Safety Report 17237595 (Version 1)
Quarter: 2020Q1

REPORT INFORMATION
  Report Type: Spontaneous
  Country: IT (occurrence: IT)
  Receive Date: 20200106
  Receipt Date: 20200106
  Transmission Date: 20200409
  Serious: Yes (Other)
  Sender: FDA-Public Use
  Company Number: IT-MYLANLABS-2020M1000724

PATIENT
  Age: 59 Year
  Sex: Female

DRUGS (1)
  1. COPEMYLTRI [Suspect]
     Active Substance: GLATIRAMER ACETATE
     Indication: MULTIPLE SCLEROSIS
     Dosage: 40 MILLIGRAM, CYCLE
     Route: 058
     Dates: start: 20160606, end: 20191203

REACTIONS (1)
  - Lipodystrophy acquired [Not Recovered/Not Resolved]
